FAERS Safety Report 12037497 (Version 1)
Quarter: 2016Q1

REPORT INFORMATION
  Report Type: Spontaneous
  Country: ES (occurrence: ES)
  Receive Date: 20160208
  Receipt Date: 20160208
  Transmission Date: 20160526
  Serious: Yes (Other)
  Sender: FDA-Public Use
  Company Number: ES-009507513-1602ESP002838

PATIENT
  Age: 53 Year
  Sex: Female
  Weight: 70 kg

DRUGS (3)
  1. ASMANEX [Suspect]
     Active Substance: MOMETASONE FUROATE
     Indication: TOTAL LUNG CAPACITY ABNORMAL
     Route: 055
     Dates: start: 2012
  2. BETMIGA [Suspect]
     Active Substance: MIRABEGRON
     Indication: NEUROGENIC BLADDER
     Dosage: UNK
     Route: 048
     Dates: start: 201501
  3. NASONEX [Suspect]
     Active Substance: MOMETASONE FUROATE
     Indication: RHINITIS
     Route: 055
     Dates: start: 2012

REACTIONS (1)
  - Atrial flutter [Not Recovered/Not Resolved]

NARRATIVE: CASE EVENT DATE: 201510
